FAERS Safety Report 12885050 (Version 2)
Quarter: 2016Q4

REPORT INFORMATION
  Report Type: Report from Study
  Country: BR (occurrence: BR)
  Receive Date: 20161026
  Receipt Date: 20161108
  Transmission Date: 20170207
  Serious: Yes (Hospitalization)
  Sender: FDA-Public Use
  Company Number: PHHY2016BR145225

PATIENT
  Sex: Male
  Weight: 88 kg

DRUGS (2)
  1. EXJADE [Suspect]
     Active Substance: DEFERASIROX
     Indication: ANAEMIA
     Dosage: 1500 MG, QD (3 DF DAILY)
     Route: 048
     Dates: start: 201606
  2. CITARABIN [Concomitant]
     Indication: MYELODYSPLASTIC SYNDROME
     Dosage: UNK UNK, QMO (21 APPLICATIONS PER MONTH)
     Route: 058
     Dates: start: 2016, end: 2016

REACTIONS (2)
  - Weight increased [Unknown]
  - Body height decreased [Unknown]
